FAERS Safety Report 9345920 (Version 1)
Quarter: 2013Q2

REPORT INFORMATION
  Report Type: Spontaneous
  Country: US (occurrence: US)
  Receive Date: 20130613
  Receipt Date: 20130613
  Transmission Date: 20140414
  Serious: Yes (Hospitalization)
  Sender: FDA-Public Use
  Company Number: US-GLENMARK GENERICS INC.-2013GMK005886

PATIENT
  Age: 20 Year
  Sex: Female

DRUGS (7)
  1. ONDANSETRON [Suspect]
     Indication: PRODUCT USED FOR UNKNOWN INDICATION
     Dosage: 4 MG, SINGLE
     Route: 042
     Dates: start: 20110910
  2. ONDANSETRON [Suspect]
     Dosage: 4 MG, 4 DOSAGES
     Route: 042
     Dates: start: 20110911
  3. AZITHROMYCIN [Suspect]
     Indication: PNEUMONIA
     Dosage: 500 MG, SINGLE
     Route: 042
     Dates: start: 20110912
  4. AZITHROMYCIN [Suspect]
     Dosage: 500 MG, UNK
     Route: 042
     Dates: start: 20110913
  5. CEFEPIME [Concomitant]
     Indication: PNEUMONIA
     Dosage: UNK
  6. CEFTRIAXONE [Concomitant]
     Indication: PNEUMONIA
     Dosage: UNK
  7. LINEZOLID [Concomitant]
     Indication: PNEUMONIA
     Dosage: UNK

REACTIONS (12)
  - Cardiac arrest [Unknown]
  - Bradycardia [Unknown]
  - Hypotension [Unknown]
  - Ventricular fibrillation [Unknown]
  - Brain injury [Recovered/Resolved]
  - Mydriasis [Unknown]
  - Posture abnormal [Unknown]
  - Hypoxic-ischaemic encephalopathy [Recovered/Resolved]
  - Ischaemic hepatitis [Recovered/Resolved]
  - Ventricular tachycardia [Unknown]
  - Pulseless electrical activity [Unknown]
  - Electrocardiogram QT prolonged [Not Recovered/Not Resolved]
